FAERS Safety Report 7527773-3 (Version None)
Quarter: 2011Q2

REPORT INFORMATION
  Report Type: 
  Country: None (occurrence: None)
  Receive Date: 20110527
  Receipt Date: 20110516
  Transmission Date: 20111010
  Serious: Yes (Other)
  Sender: FDA-Public Use
  Company Number: 20110411

PATIENT
  Age: 54 Year
  Sex: Female

DRUGS (1)
  1. VENOFER [Suspect]
     Indication: PRODUCT USED FOR UNKNOWN INDICATION
     Dosage: 100 MG ONCE WEEKLY INTRAVENOUS
     Route: 042

REACTIONS (5)
  - DIARRHOEA [None]
  - FATIGUE [None]
  - MALAISE [None]
  - INFUSION RELATED REACTION [None]
  - VOMITING [None]
